FAERS Safety Report 20321075 (Version 1)
Quarter: 2022Q1

REPORT INFORMATION
  Report Type: Spontaneous
  Country: GB (occurrence: GB)
  Receive Date: 20220111
  Receipt Date: 20220111
  Transmission Date: 20220423
  Serious: Yes (Disabling)
  Sender: FDA-Public Use
  Company Number: None

PATIENT
  Age: 37 Year
  Sex: Male

DRUGS (2)
  1. ERTAPENEM SODIUM [Suspect]
     Active Substance: ERTAPENEM SODIUM
     Indication: Vascular graft infection
     Dosage: 1G
     Route: 042
     Dates: start: 20200101, end: 20211231
  2. TEICOPLANIN [Concomitant]
     Active Substance: TEICOPLANIN
     Indication: Ill-defined disorder
     Dosage: UNK

REACTIONS (1)
  - Intermittent claudication [Not Recovered/Not Resolved]

NARRATIVE: CASE EVENT DATE: 20200601
